FAERS Safety Report 23212434 (Version 1)
Quarter: 2023Q4

REPORT INFORMATION
  Report Type: Spontaneous
  Country: US (occurrence: None)
  Receive Date: 20231121
  Receipt Date: 20231121
  Transmission Date: 20240110
  Serious: No
  Sender: FDA-Public Use
  Company Number: None

PATIENT
  Sex: Male

DRUGS (1)
  1. OPSUMIT [Suspect]
     Active Substance: MACITENTAN
     Indication: Pulmonary arterial hypertension
     Dosage: 10MG ONCE A DAY ORAL
     Route: 048
     Dates: start: 20230913

REACTIONS (3)
  - Peripheral swelling [None]
  - Peripheral swelling [None]
  - Drug ineffective [None]
